FAERS Safety Report 14889659 (Version 1)
Quarter: 2018Q2

REPORT INFORMATION
  Report Type: Report from Study
  Country: None (occurrence: US)
  Receive Date: 20180514
  Receipt Date: 20180514
  Transmission Date: 20180711
  Serious: Yes (Other)
  Sender: FDA-Public Use
  Company Number: US-ABBVIE-18K-163-2295595-00

PATIENT
  Age: 65 Year
  Sex: Male

DRUGS (1)
  1. HUMIRA [Suspect]
     Active Substance: ADALIMUMAB
     Indication: RHEUMATOID ARTHRITIS
     Route: 058
     Dates: start: 20180320, end: 2018

REACTIONS (13)
  - Wrong technique in product usage process [Recovered/Resolved]
  - Pollakiuria [Not Recovered/Not Resolved]
  - Bacterial test positive [Recovered/Resolved]
  - Blood urine present [Recovered/Resolved]
  - Injection site pain [Recovered/Resolved]
  - Hepatic cirrhosis [Recovering/Resolving]
  - Injury associated with device [Recovered/Resolved]
  - Injection site swelling [Recovered/Resolved]
  - Injection site haemorrhage [Recovered/Resolved]
  - Stomatitis [Not Recovered/Not Resolved]
  - Increased tendency to bruise [Not Recovered/Not Resolved]
  - Pruritus [Recovering/Resolving]
  - Injection site pain [Recovered/Resolved]

NARRATIVE: CASE EVENT DATE: 2018
